FAERS Safety Report 15349026 (Version 2)
Quarter: 2018Q4

REPORT INFORMATION
  Report Type: Spontaneous
  Country: TW (occurrence: TW)
  Receive Date: 20180904
  Receipt Date: 20181113
  Transmission Date: 20190204
  Serious: Yes (Hospitalization, Other)
  Sender: FDA-Public Use
  Company Number: TW-ABBVIE-18K-153-2472285-00

PATIENT
  Age: 39 Year
  Sex: Male
  Weight: 97.5 kg

DRUGS (5)
  1. SILYMARIN [Concomitant]
     Active Substance: DIETARY SUPPLEMENT\HERBALS\MILK THISTLE
     Indication: PROPHYLAXIS
     Dates: start: 20170927
  2. FOLIC ACID. [Concomitant]
     Active Substance: FOLIC ACID
     Indication: PROPHYLAXIS
     Dates: start: 20171125
  3. HUMIRA [Suspect]
     Active Substance: ADALIMUMAB
     Route: 058
     Dates: start: 20180822
  4. HUMIRA [Suspect]
     Active Substance: ADALIMUMAB
     Indication: RHEUMATOID ARTHRITIS
     Route: 058
     Dates: start: 20180508, end: 20180720
  5. GLIPIZIDE. [Concomitant]
     Active Substance: GLIPIZIDE
     Indication: DIABETES MELLITUS
     Dates: start: 20170210

REACTIONS (7)
  - Vertebral foraminal stenosis [Unknown]
  - Spinal pain [Unknown]
  - Joint range of motion decreased [Unknown]
  - Post procedural complication [Unknown]
  - Intervertebral disc degeneration [Unknown]
  - Pneumoretroperitoneum [Unknown]
  - Hepatic mass [Unknown]

NARRATIVE: CASE EVENT DATE: 2018
